FAERS Safety Report 5974455-5 (Version None)
Quarter: 2008Q4

REPORT INFORMATION
  Report Type: 
  Country: None (occurrence: None)
  Receive Date: 20081201
  Receipt Date: 20081128
  Transmission Date: 20090506
  Serious: No
  Sender: FDA-Public Use
  Company Number: GB-PFIZER INC-2008098812

PATIENT
  Sex: Female
  Weight: 62.1 kg

DRUGS (1)
  1. CHAMPIX [Suspect]
     Route: 048
     Dates: start: 20080905, end: 20081020

REACTIONS (1)
  - POSTMENOPAUSAL HAEMORRHAGE [None]
